FAERS Safety Report 13653712 (Version 1)
Quarter: 2017Q2

REPORT INFORMATION
  Report Type: Spontaneous
  Country: US (occurrence: US)
  Receive Date: 20170614
  Receipt Date: 20170614
  Transmission Date: 20170830
  Serious: Yes (Hospitalization, Other)
  Sender: FDA-Public Use
  Company Number: US-PFIZER INC-2017181883

PATIENT
  Age: 60 Year
  Sex: Male
  Weight: 99.79 kg

DRUGS (16)
  1. PREDNISONE. [Concomitant]
     Active Substance: PREDNISONE
     Indication: ASPERGILLUS INFECTION
     Dosage: 2 DF, QD
     Route: 048
     Dates: start: 201408
  2. REMICADE [Concomitant]
     Active Substance: INFLIXIMAB
     Indication: SARCOIDOSIS
     Dosage: 500 ?G, Q6WK INFUSION WAS EVERY 8 WEEKS FOR 8 MONTHS AT FIRST, NOW IT IS DOWN TO 6 WEEKS (INFUSION )
     Route: 041
     Dates: start: 201602
  3. ELIQUIS [Suspect]
     Active Substance: APIXABAN
     Dosage: 5 MG, BID
     Route: 048
     Dates: start: 201704
  4. ELIQUIS [Suspect]
     Active Substance: APIXABAN
     Indication: CEREBROVASCULAR ACCIDENT PROPHYLAXIS
     Dosage: UNK
     Route: 065
  5. PREDNISONE. [Concomitant]
     Active Substance: PREDNISONE
     Indication: SARCOIDOSIS
     Dosage: 20 MG, QD
     Route: 065
     Dates: start: 201705
  6. VFEND [Suspect]
     Active Substance: VORICONAZOLE
     Indication: PNEUMONIA
     Dosage: 200 MG, BID
     Route: 065
     Dates: start: 201702
  7. AZATHIOPRINE. [Concomitant]
     Active Substance: AZATHIOPRINE
     Indication: SARCOIDOSIS
     Dosage: 2 DF, QD REDUCED 20MG PER DAY AFTER LEAVING HOSPITAL (1DF=40 MG)
     Route: 048
     Dates: start: 201408
  8. AZATHIOPRINE. [Concomitant]
     Active Substance: AZATHIOPRINE
     Dosage: 50 MG, TID
     Route: 048
     Dates: start: 201511
  9. ZOLPIDEM [Concomitant]
     Active Substance: ZOLPIDEM\ZOLPIDEM TARTRATE
     Dosage: 10 MG, QD ONCE A NIGHT
     Route: 048
     Dates: start: 201604
  10. LOSARTAN. [Concomitant]
     Active Substance: LOSARTAN
     Indication: BLOOD PRESSURE MANAGEMENT
     Dosage: 100 MG, QD
     Route: 048
     Dates: start: 201502
  11. IMURAN [Concomitant]
     Active Substance: AZATHIOPRINE
     Indication: SARCOIDOSIS
     Dosage: UNK, TID
     Route: 065
     Dates: start: 201409
  12. MULTIVITAMIN /00097801/ [Concomitant]
     Active Substance: VITAMINS
     Dosage: 1 TAB, QD STARTED 20 YEARS AGO (ALIVE)
     Route: 048
  13. VORICONAZOLE. [Concomitant]
     Active Substance: VORICONAZOLE
     Indication: ASPERGILLUS INFECTION
     Dosage: 200 MG, BID
     Route: 048
     Dates: start: 201703
  14. LYRICA [Suspect]
     Active Substance: PREGABALIN
     Indication: NEUROPATHY PERIPHERAL
     Dosage: 150 MG, TID
     Route: 048
     Dates: start: 201608, end: 20170405
  15. PLAQUENIL /00072602/ [Concomitant]
     Active Substance: HYDROXYCHLOROQUINE DIPHOSPHATE
     Indication: SARCOIDOSIS
     Dosage: 200 MG, QD (START DATE: AROUND OCT2014 OR NOV2014)
     Route: 048
     Dates: start: 2014
  16. GABAPENTIN. [Concomitant]
     Active Substance: GABAPENTIN
     Indication: NEUROPATHY PERIPHERAL
     Dosage: 800 MG, TID ONE AND A HALF CAPSULES
     Route: 048
     Dates: start: 201603

REACTIONS (2)
  - Pulmonary mass [Recovering/Resolving]
  - Bronchopulmonary aspergillosis [Recovering/Resolving]
